FAERS Safety Report 19298573 (Version 1)
Quarter: 2021Q2

REPORT INFORMATION
  Report Type: Spontaneous
  Country: IE (occurrence: IE)
  Receive Date: 20210524
  Receipt Date: 20210524
  Transmission Date: 20210717
  Serious: Yes (Hospitalization)
  Sender: FDA-Public Use
  Company Number: NVSC2021IE113461

PATIENT
  Age: 13 Year
  Sex: Female

DRUGS (1)
  1. RISPERIDONE. [Suspect]
     Active Substance: RISPERIDONE
     Indication: AUTISM SPECTRUM DISORDER
     Dosage: 0.25 MG, QHS
     Route: 065

REACTIONS (3)
  - Catatonia [Recovered/Resolved]
  - Product use in unapproved indication [Unknown]
  - Drug withdrawal syndrome [Recovered/Resolved]
